FAERS Safety Report 23772816 (Version 2)
Quarter: 2024Q2

REPORT INFORMATION
  Report Type: Spontaneous
  Country: US (occurrence: US)
  Receive Date: 20240423
  Receipt Date: 20240501
  Transmission Date: 20240716
  Serious: Yes (Other)
  Sender: FDA-Public Use
  Company Number: US-ABBVIE-5729648

PATIENT

DRUGS (1)
  1. REFRESH CLASSIC [Suspect]
     Active Substance: POLYVINYL ALCOHOL\POVIDONE
     Indication: Product used for unknown indication
     Dosage: PVA 14MG/ML, POVIDONE 6MG/ML
     Route: 047
     Dates: start: 20240413

REACTIONS (5)
  - Blindness [Unknown]
  - Photophobia [Not Recovered/Not Resolved]
  - Vision blurred [Not Recovered/Not Resolved]
  - Pain [Unknown]
  - Skin swelling [Unknown]

NARRATIVE: CASE EVENT DATE: 20240401
